FAERS Safety Report 12952546 (Version 5)
Quarter: 2021Q2

REPORT INFORMATION
  Report Type: Report from Study
  Country: US (occurrence: US)
  Receive Date: 20161117
  Receipt Date: 20210519
  Transmission Date: 20210716
  Serious: Yes (Other)
  Sender: FDA-Public Use
  Company Number: US-ARIAD-2016US007236

PATIENT
  Sex: Female

DRUGS (1)
  1. PONATINIB [Suspect]
     Active Substance: PONATINIB
     Indication: CHRONIC MYELOID LEUKAEMIA
     Dosage: 45 MILLIGRAM, QD
     Route: 048
     Dates: start: 20160720

REACTIONS (7)
  - Depression [Unknown]
  - Erythema [Unknown]
  - Rash erythematous [Unknown]
  - Treatment noncompliance [Unknown]
  - Anxiety [Unknown]
  - Insurance issue [Unknown]
  - Rash [Unknown]
